FAERS Safety Report 16388621 (Version 1)
Quarter: 2019Q2

REPORT INFORMATION
  Report Type: Report from Study
  Country: None (occurrence: US)
  Receive Date: 20190604
  Receipt Date: 20190604
  Transmission Date: 20190711
  Serious: Yes (Other)
  Sender: FDA-Public Use
  Company Number: US-ABBVIE-18K-163-2394589-00

PATIENT
  Age: 76 Year
  Sex: Male

DRUGS (1)
  1. HUMIRA [Suspect]
     Active Substance: ADALIMUMAB
     Indication: RHEUMATOID ARTHRITIS
     Route: 058

REACTIONS (4)
  - Intervertebral disc protrusion [Recovering/Resolving]
  - Wrist fracture [Recovering/Resolving]
  - Rib fracture [Unknown]
  - Fall [Recovering/Resolving]

NARRATIVE: CASE EVENT DATE: 2018
